FAERS Safety Report 7231614-1 (Version None)
Quarter: 2011Q1

REPORT INFORMATION
  Report Type: 
  Country: None (occurrence: None)
  Receive Date: 20110118
  Receipt Date: 20110111
  Transmission Date: 20110831
  Serious: Yes (Hospitalization)
  Sender: FDA-Public Use
  Company Number: US-US-EMD SERONO, INC.-7019564

PATIENT
  Sex: Female

DRUGS (6)
  1. LOPRESSOR [Concomitant]
     Indication: BLOOD PRESSURE MANAGEMENT
     Dates: start: 20100101
  2. BLOOD PRESSURE MEDICATION [Concomitant]
     Indication: BLOOD PRESSURE MANAGEMENT
  3. REBIF [Suspect]
     Route: 058
     Dates: start: 20100101, end: 20100101
  4. REBIF [Suspect]
     Route: 058
     Dates: start: 20100101, end: 20100101
  5. REBIF [Suspect]
     Indication: MULTIPLE SCLEROSIS
     Route: 058
     Dates: start: 20100325, end: 20100101
  6. UNSPECIFIED MEDICATIONS, TOO MANY TO LIST [Concomitant]

REACTIONS (4)
  - DIVERTICULITIS [None]
  - GASTROINTESTINAL BACTERIAL INFECTION [None]
  - LARGE INTESTINE PERFORATION [None]
  - PULMONARY THROMBOSIS [None]
